FAERS Safety Report 8818955 (Version 1)
Quarter: 2012Q4

REPORT INFORMATION
  Report Type: Spontaneous
  Country: US (occurrence: None)
  Receive Date: 20121004
  Receipt Date: 20121004
  Transmission Date: 20130627
  Serious: Yes (Disabling)
  Sender: FDA-Public Use
  Company Number: None

PATIENT

DRUGS (1)
  1. PROPECIA [Suspect]
     Indication: MALE PATTERN BALDNESS
     Route: 048
     Dates: start: 20110620, end: 20120312

REACTIONS (10)
  - Depression [None]
  - Libido decreased [None]
  - Erectile dysfunction [None]
  - Anxiety [None]
  - Panic attack [None]
  - Suicidal ideation [None]
  - Fatigue [None]
  - Decreased interest [None]
  - Unevaluable event [None]
  - Muscle mass [None]
